FAERS Safety Report 4618470-2 (Version None)
Quarter: 2005Q1

REPORT INFORMATION
  Report Type: 
  Country: None (occurrence: None)
  Receive Date: 20050324
  Receipt Date: 20050316
  Transmission Date: 20050727
  Serious: Yes (Hospitalization, Other)
  Sender: FDA-Public Use
  Company Number: AU-MERCK-0503AUS00110

PATIENT
  Age: 48 Year
  Sex: Female

DRUGS (10)
  1. ZOCOR [Suspect]
     Indication: PROPHYLAXIS
     Route: 048
     Dates: end: 20031201
  2. ZOCOR [Suspect]
     Route: 048
     Dates: start: 20031201, end: 20040201
  3. PRINIVIL [Concomitant]
     Route: 048
  4. METFORMIN HYDROCHLORIDE [Concomitant]
     Route: 065
  5. GLICLAZIDE [Concomitant]
     Route: 065
  6. INFLUENZA VIRUS SPLIT VIRION 3V VACCINE INACTIVATED [Concomitant]
     Route: 065
  7. TOPIRAMATE [Concomitant]
     Indication: PAIN
     Route: 065
  8. CORTICOSTEROIDS (UNSPECIFIED) [Concomitant]
     Indication: MULTIPLE SCLEROSIS
     Route: 065
     Dates: start: 20040101
  9. ACETAMINOPHEN AND CODEINE PHOSPHATE [Concomitant]
     Indication: PAIN
     Route: 065
  10. ACETAMINOPHEN AND ASPIRIN AND CAFFEINE AND HYDROCODONE BITARTRATE [Concomitant]
     Indication: PAIN
     Route: 065

REACTIONS (12)
  - BALANCE DISORDER [None]
  - DIABETES MELLITUS INADEQUATE CONTROL [None]
  - FALL [None]
  - FLANK PAIN [None]
  - HELICOBACTER INFECTION [None]
  - HEMIPARESIS [None]
  - IRON DEFICIENCY ANAEMIA [None]
  - MEDICATION ERROR [None]
  - PAIN IN EXTREMITY [None]
  - PANCREATITIS [None]
  - POLYNEUROPATHY [None]
  - VITAMIN B12 DEFICIENCY [None]
